FAERS Safety Report 9237805 (Version 1)
Quarter: 2013Q2

REPORT INFORMATION
  Report Type: Spontaneous
  Country: US (occurrence: US)
  Receive Date: 20130418
  Receipt Date: 20130418
  Transmission Date: 20140414
  Serious: No
  Sender: FDA-Public Use
  Company Number: US-BIOGENIDEC-2013BI034003

PATIENT
  Age: 42 Year
  Sex: Female

DRUGS (4)
  1. TYSABRI [Suspect]
     Indication: MULTIPLE SCLEROSIS
     Route: 042
     Dates: start: 20110810
  2. AVONEX [Concomitant]
     Indication: MULTIPLE SCLEROSIS
     Route: 030
  3. AVONEX [Concomitant]
     Indication: MULTIPLE SCLEROSIS
     Route: 030
     Dates: start: 19980301
  4. AMPYRA [Concomitant]
     Indication: MULTIPLE SCLEROSIS

REACTIONS (6)
  - General symptom [Not Recovered/Not Resolved]
  - Joint dislocation [Recovered/Resolved]
  - Thermal burn [Not Recovered/Not Resolved]
  - Mobility decreased [Not Recovered/Not Resolved]
  - Foot fracture [Recovered/Resolved]
  - Multiple sclerosis [Not Recovered/Not Resolved]
